FAERS Safety Report 5993373-X (Version None)
Quarter: 2008Q4

REPORT INFORMATION
  Report Type: 
  Country: None (occurrence: None)
  Receive Date: 20081212
  Receipt Date: 20081208
  Transmission Date: 20090506
  Serious: Yes (Other)
  Sender: FDA-Public Use
  Company Number: JP-ASTRAZENECA-2008AP09521

PATIENT
  Age: 65 Year
  Sex: Male

DRUGS (4)
  1. CRESTOR [Suspect]
     Indication: HYPERCHOLESTEROLAEMIA
     Route: 048
     Dates: start: 20081031, end: 20081117
  2. CALBLOCK [Suspect]
     Route: 048
     Dates: start: 20080606, end: 20081117
  3. FLUITRAN [Suspect]
     Route: 048
     Dates: start: 20080818, end: 20081117
  4. EPADEL S [Suspect]
     Route: 048
     Dates: start: 20080905, end: 20081117

REACTIONS (1)
  - DIABETES MELLITUS [None]
